FAERS Safety Report 12187853 (Version 3)
Quarter: 2016Q2

REPORT INFORMATION
  Report Type: Spontaneous
  Country: US (occurrence: US)
  Receive Date: 20160317
  Receipt Date: 20160608
  Transmission Date: 20160815
  Serious: Yes (Hospitalization, Other)
  Sender: FDA-Public Use
  Company Number: US-ACTELION-A-NJ2016-132863

PATIENT
  Age: 40 Year
  Sex: Female

DRUGS (2)
  1. VELETRI [Suspect]
     Active Substance: EPOPROSTENOL
     Indication: PULMONARY HYPERTENSION
     Dosage: 20.8 NG/KG, PER MIN
     Route: 042
     Dates: start: 20140716
  2. RIOCIGUAT [Concomitant]
     Active Substance: RIOCIGUAT

REACTIONS (10)
  - Weight increased [Unknown]
  - Dyspnoea [Recovered/Resolved]
  - Dyspnoea exertional [Recovered/Resolved]
  - Blood count abnormal [Unknown]
  - Chest pain [Unknown]
  - Anaemia [Not Recovered/Not Resolved]
  - Micturition disorder [Unknown]
  - Palpitations [Recovered/Resolved]
  - Renal impairment [Unknown]
  - Dyspnoea [Unknown]
